FAERS Safety Report 11275105 (Version 1)
Quarter: 2015Q3

REPORT INFORMATION
  Report Type: Spontaneous
  Country: US (occurrence: None)
  Receive Date: 20150714
  Receipt Date: 20150714
  Transmission Date: 20151125
  Serious: Yes (Hospitalization)
  Sender: FDA-Public Use
  Company Number: None

PATIENT
  Age: 75 Year
  Sex: Male
  Weight: 72 kg

DRUGS (7)
  1. ATENOLOL. [Concomitant]
     Active Substance: ATENOLOL
  2. DEXAMETHAZONE [Concomitant]
     Active Substance: DEXAMETHASONE
  3. KEPPRA [Concomitant]
     Active Substance: LEVETIRACETAM
  4. OXYBUTININE [Concomitant]
     Active Substance: OXYBUTYNIN\OXYBUTYNIN CHLORIDE
  5. MELATONIN [Concomitant]
     Active Substance: MELATONIN
  6. BEVACIZUMAB (RHUMAB VEGF) [Suspect]
     Active Substance: BEVACIZUMAB
     Dates: end: 20150702
  7. ASPIRIN. [Concomitant]
     Active Substance: ASPIRIN

REACTIONS (10)
  - Night sweats [None]
  - Diverticulitis [None]
  - Platelet count decreased [None]
  - Diarrhoea [None]
  - Seizure [None]
  - Abdominal discomfort [None]
  - Blood pressure fluctuation [None]
  - Chest discomfort [None]
  - Faecal incontinence [None]
  - Chest pain [None]

NARRATIVE: CASE EVENT DATE: 20150705
